FAERS Safety Report 13457885 (Version 3)
Quarter: 2017Q3

REPORT INFORMATION
  Report Type: Spontaneous
  Country: US (occurrence: US)
  Receive Date: 20170419
  Receipt Date: 20170927
  Transmission Date: 20171127
  Serious: No
  Sender: FDA-Public Use
  Company Number: US-TEVA-758226ACC

PATIENT
  Age: 42 Year
  Sex: Female

DRUGS (18)
  1. MAGNESIUM [Concomitant]
     Active Substance: MAGNESIUM
  2. ZYRTEC [Concomitant]
     Active Substance: CETIRIZINE HYDROCHLORIDE
  3. CYANOCOBALAMINE INJ [Concomitant]
     Dosage: 1000 MG
     Dates: start: 20170223
  4. PAMELOR [Concomitant]
     Active Substance: NORTRIPTYLINE HYDROCHLORIDE
     Dosage: 50 MG
     Dates: start: 20170223
  5. NARATRIPTAN [Concomitant]
     Active Substance: NARATRIPTAN HYDROCHLORIDE
     Dosage: 2.5 MG
     Dates: start: 20170223
  6. COLACE [Concomitant]
     Active Substance: DOCUSATE SODIUM
  7. COPAXONE [Suspect]
     Active Substance: GLATIRAMER ACETATE
     Indication: MULTIPLE SCLEROSIS
     Route: 058
  8. BACLOFEN. [Concomitant]
     Active Substance: BACLOFEN
     Dosage: 20 MG
     Dates: start: 20170223
  9. FENTANYL. [Concomitant]
     Active Substance: FENTANYL
     Dosage: 75MCG/HR
     Dates: start: 20170223
  10. VITAMIN D [Concomitant]
     Active Substance: CHOLECALCIFEROL
  11. NEURONTIN [Concomitant]
     Active Substance: GABAPENTIN
     Dosage: 600 MG
     Dates: start: 20170223
  12. PROCHLORPER [Concomitant]
     Dosage: 10 MG
     Dates: start: 20170223
  13. GABAPENTIN. [Concomitant]
     Active Substance: GABAPENTIN
  14. NORTRIPTYLINE [Concomitant]
     Active Substance: NORTRIPTYLINE
  15. AMERGE [Concomitant]
     Active Substance: NARATRIPTAN HYDROCHLORIDE
  16. VITAMIN B12 [Concomitant]
     Active Substance: CYANOCOBALAMIN
  17. DURAGESIC [Concomitant]
     Active Substance: FENTANYL
  18. COMPAZINE [Concomitant]
     Active Substance: PROCHLORPERAZINE MALEATE

REACTIONS (2)
  - Injection site pruritus [Recovered/Resolved]
  - Therapy change [Unknown]

NARRATIVE: CASE EVENT DATE: 20150605
